FAERS Safety Report 5852314-6 (Version None)
Quarter: 2008Q3

REPORT INFORMATION
  Report Type: 
  Country: None (occurrence: None)
  Receive Date: 20080821
  Receipt Date: 20080818
  Transmission Date: 20090109
  Serious: Yes (Other)
  Sender: FDA-Public Use
  Company Number: FR-BRISTOL-MYERS SQUIBB COMPANY-14306872

PATIENT
  Age: 46 Year
  Sex: Female

DRUGS (3)
  1. MODECATE [Suspect]
     Dosage: FORM = SOLUTION
     Route: 030
     Dates: start: 20070201
  2. SEGLOR [Interacting]
     Dates: start: 20080701
  3. NARAMIG [Interacting]
     Route: 065
     Dates: start: 20080701

REACTIONS (2)
  - DRUG INTERACTION [None]
  - INJECTION SITE NECROSIS [None]
